FAERS Safety Report 6377347-5 (Version None)
Quarter: 2009Q3

REPORT INFORMATION
  Report Type: 
  Country: None (occurrence: None)
  Receive Date: 20090923
  Receipt Date: 20090923
  Transmission Date: 20100115
  Serious: No
  Sender: FDA-Public Use
  Company Number: None

PATIENT
  Age: 47 Year
  Sex: Male
  Weight: 85 kg

DRUGS (11)
  1. RAMIPRIL [Suspect]
     Indication: HYPERTENSION
     Dosage: 15MG PO QD
     Route: 048
     Dates: start: 20090704, end: 20090709
  2. ALBUTEROL [Concomitant]
  3. ASPIRIN [Concomitant]
  4. ATORVASTATIN [Concomitant]
  5. CEFTRIAXONE [Concomitant]
  6. DOCUSATE [Concomitant]
  7. ENOXAPARIN [Concomitant]
  8. INSULIN [Concomitant]
  9. METOPROLOL SUCCINATE [Concomitant]
  10. RANITIDINE [Concomitant]
  11. SENNA [Concomitant]

REACTIONS (2)
  - ANGIOEDEMA [None]
  - LIP SWELLING [None]
